FAERS Safety Report 4519147-4 (Version None)
Quarter: 2004Q4

REPORT INFORMATION
  Report Type: 
  Country: None (occurrence: None)
  Receive Date: 20041206
  Receipt Date: 20041126
  Transmission Date: 20050328
  Serious: Yes (Hospitalization)
  Sender: FDA-Public Use
  Company Number: DE-JNJFOC-20041106292

PATIENT
  Sex: Female

DRUGS (2)
  1. DURAGESIC [Suspect]
     Indication: UNEVALUABLE EVENT
     Route: 062
  2. DICLOFENAC [Concomitant]

REACTIONS (2)
  - DISTURBANCE IN ATTENTION [None]
  - RENAL FAILURE [None]
